FAERS Safety Report 7673564-2 (Version None)
Quarter: 2011Q3

REPORT INFORMATION
  Report Type: 
  Country: None (occurrence: None)
  Receive Date: 20110804
  Receipt Date: 20110623
  Transmission Date: 20111222
  Serious: Yes (Hospitalization, Other)
  Sender: FDA-Public Use
  Company Number: 2011-00683

PATIENT
  Age: 66 Year
  Sex: Female

DRUGS (6)
  1. CLOZAPINE [Suspect]
     Indication: SCHIZOPHRENIA
     Dosage: 425 MG (425 MG), ORAL
     Route: 048
     Dates: start: 20030101, end: 20110228
  2. ASPIRIN [Concomitant]
  3. LEVOTHYROXINE SODIUM [Concomitant]
  4. SIMVASTATIN [Suspect]
     Indication: BLOOD CHOLESTEROL INCREASED
     Dosage: (40 MG), ORAL
     Route: 048
     Dates: start: 20100101, end: 20110228
  5. AMISULPRIDE (UNKNOWN) [Suspect]
     Indication: SCHIZOPHRENIA
     Dosage: (300 MG), OTHER, OROPHARINGEAL
     Route: 049
     Dates: start: 20110401
  6. AMISULPRIDE (UNKNOWN) [Suspect]
     Indication: SCHIZOPHRENIA
     Dosage: (300 MG), OTHER, OROPHARINGEAL
     Route: 049
     Dates: start: 20030101, end: 20110228

REACTIONS (8)
  - BLOOD BILIRUBIN INCREASED [None]
  - BLOOD ALKALINE PHOSPHATASE INCREASED [None]
  - HYPOTHYROIDISM [None]
  - ALANINE AMINOTRANSFERASE INCREASED [None]
  - HEPATIC FUNCTION ABNORMAL [None]
  - INTERNATIONAL NORMALISED RATIO INCREASED [None]
  - OVARIAN ADENOMA [None]
  - PNEUMONIA [None]
